FAERS Safety Report 10163114 (Version 1)
Quarter: 2014Q2

REPORT INFORMATION
  Report Type: Spontaneous
  Country: US (occurrence: US)
  Receive Date: 20140509
  Receipt Date: 20140509
  Transmission Date: 20141212
  Serious: Yes (Hospitalization)
  Sender: FDA-Public Use
  Company Number: US-GLAXOSMITHKLINE-A1071537A

PATIENT
  Age: 76 Year
  Sex: Female

DRUGS (9)
  1. ADVAIR [Suspect]
     Indication: CHRONIC OBSTRUCTIVE PULMONARY DISEASE
     Dosage: 1PUFF TWICE PER DAY
     Route: 055
     Dates: start: 200403
  2. LOSARTAN [Concomitant]
  3. MONTELUKAST [Concomitant]
  4. NEXIUM [Concomitant]
  5. BABY ASPIRIN [Concomitant]
  6. DIAZEPAM [Concomitant]
  7. CRESTOR [Concomitant]
  8. FUROSEMIDE [Concomitant]
  9. VITAMINS [Concomitant]

REACTIONS (5)
  - Tumour excision [Recovering/Resolving]
  - Myocardial infarction [Unknown]
  - Coronary arterial stent insertion [Unknown]
  - Chronic obstructive pulmonary disease [Unknown]
  - Sinus disorder [Unknown]
